FAERS Safety Report 10185217 (Version 1)
Quarter: 2014Q2

REPORT INFORMATION
  Report Type: Spontaneous
  Country: US (occurrence: None)
  Receive Date: 20140520
  Receipt Date: 20140520
  Transmission Date: 20141212
  Serious: Yes (Other)
  Sender: FDA-Public Use
  Company Number: None

PATIENT
  Age: 3 Year
  Sex: Male
  Weight: 18.05 kg

DRUGS (2)
  1. FLOVENT HFA [Suspect]
     Indication: MULTIPLE ALLERGIES
     Route: 048
     Dates: start: 20140423, end: 20140425
  2. FLOVENT HFA [Suspect]
     Indication: EOSINOPHILIC OESOPHAGITIS
     Route: 048
     Dates: start: 20140423, end: 20140425

REACTIONS (1)
  - Rash [None]
